FAERS Safety Report 25362404 (Version 1)
Quarter: 2025Q2

REPORT INFORMATION
  Report Type: Spontaneous
  Country: AU (occurrence: AU)
  Receive Date: 20250527
  Receipt Date: 20250527
  Transmission Date: 20250717
  Serious: Yes (Hospitalization, Other)
  Sender: MYLAN
  Company Number: AU-MYLANLABS-2025M1042745

PATIENT
  Age: 29 Year
  Sex: Male

DRUGS (1)
  1. CLOZARIL [Suspect]
     Active Substance: CLOZAPINE
     Indication: Schizophrenia
     Dosage: UNK, BID (75MG MANE (AM), 100MG NOCTE(PM))
     Dates: start: 20250417, end: 20250508

REACTIONS (5)
  - Blood creatine phosphokinase increased [Recovering/Resolving]
  - C-reactive protein increased [Recovering/Resolving]
  - Blood prolactin increased [Unknown]
  - Mean platelet volume increased [Unknown]
  - COVID-19 [Unknown]

NARRATIVE: CASE EVENT DATE: 20250508
